FAERS Safety Report 17021729 (Version 1)
Quarter: 2019Q4

REPORT INFORMATION
  Report Type: Report from Study
  Country: LB (occurrence: LB)
  Receive Date: 20191112
  Receipt Date: 20191112
  Transmission Date: 20200122
  Serious: Yes (Other)
  Sender: FDA-Public Use
  Company Number: NVSC2019LB032518

PATIENT
  Sex: Female

DRUGS (1)
  1. GILENYA [Suspect]
     Active Substance: FINGOLIMOD HYDROCHLORIDE
     Indication: MULTIPLE SCLEROSIS
     Dosage: 0.5 OT, QD
     Route: 048
     Dates: start: 20181102

REACTIONS (5)
  - Epilepsy [Unknown]
  - Amnesia [Unknown]
  - Vertigo [Unknown]
  - Central nervous system lesion [Unknown]
  - Hypoaesthesia [Unknown]
